FAERS Safety Report 23458676 (Version 1)
Quarter: 2024Q1

REPORT INFORMATION
  Report Type: Spontaneous
  Country: US (occurrence: US)
  Receive Date: 20240130
  Receipt Date: 20240130
  Transmission Date: 20240409
  Serious: No
  Sender: FDA-Public Use
  Company Number: US-ABBVIE-5603811

PATIENT
  Age: 61 Year
  Sex: Male

DRUGS (1)
  1. HUMIRA [Suspect]
     Active Substance: ADALIMUMAB
     Indication: Arthritis
     Dosage: FORM STRENGTH 40 MILLIGRAM
     Route: 058
     Dates: start: 2008

REACTIONS (3)
  - Off label use [Not Recovered/Not Resolved]
  - Device leakage [Unknown]
  - Delayed delivery [Not Recovered/Not Resolved]

NARRATIVE: CASE EVENT DATE: 20240121
